FAERS Safety Report 18409369 (Version 3)
Quarter: 2020Q4

REPORT INFORMATION
  Report Type: Report from Study
  Country: IT (occurrence: IT)
  Receive Date: 20201021
  Receipt Date: 20201224
  Transmission Date: 20210114
  Serious: Yes (Hospitalization)
  Sender: FDA-Public Use
  Company Number: IT-ACCORD-205848

PATIENT
  Age: 61 Year
  Sex: Female

DRUGS (4)
  1. METHOTREXATE. [Suspect]
     Active Substance: METHOTREXATE
     Indication: RHEUMATOID ARTHRITIS
     Route: 058
  2. DIBASE [Concomitant]
     Active Substance: CHOLECALCIFEROL
  3. FOLINA [Concomitant]
     Dosage: STRENGTH: 5 MG
  4. METHOTREXATE. [Suspect]
     Active Substance: METHOTREXATE
     Indication: RHEUMATOID ARTHRITIS
     Route: 030

REACTIONS (6)
  - Cough [Recovering/Resolving]
  - Decreased appetite [Recovering/Resolving]
  - COVID-19 pneumonia [Recovering/Resolving]
  - Diarrhoea [Recovering/Resolving]
  - Hyperpyrexia [Recovering/Resolving]
  - Respiratory failure [Recovering/Resolving]

NARRATIVE: CASE EVENT DATE: 20200314
